FAERS Safety Report 7449206-8 (Version None)
Quarter: 2011Q2

REPORT INFORMATION
  Report Type: 
  Country: None (occurrence: None)
  Receive Date: 20110502
  Receipt Date: 20110420
  Transmission Date: 20111010
  Serious: Yes (Death, Hospitalization)
  Sender: FDA-Public Use
  Company Number: US-BIOGENIDEC-2011BI010473

PATIENT
  Age: 41 Year
  Sex: Female

DRUGS (1)
  1. AVONEX [Suspect]
     Indication: MULTIPLE SCLEROSIS
     Route: 030
     Dates: start: 20100905, end: 20110228

REACTIONS (7)
  - HEPATIC RUPTURE [None]
  - MOUTH HAEMORRHAGE [None]
  - KIDNEY RUPTURE [None]
  - SWELLING [None]
  - DEATH [None]
  - AMMONIA INCREASED [None]
  - MALAISE [None]
